FAERS Safety Report 5268951-6 (Version None)
Quarter: 2007Q1

REPORT INFORMATION
  Report Type: 
  Country: None (occurrence: None)
  Receive Date: 20061214
  Receipt Date: 20060607
  Transmission Date: 20070707
  Serious: Yes (Other)
  Sender: FDA-Public Use
  Company Number: 2006087546

PATIENT
  Age: 42 Year
  Sex: Male
  Weight: 79.3795 kg

DRUGS (4)
  1. XANAX [Suspect]
     Indication: DRUG USE FOR UNKNOWN INDICATION
  2. ALL OTHER THERAPEUTIC PRODUCTS (ALL OTHER THERAPEUTIC  PRODUCTS) [Concomitant]
  3. CLONIDINE [Concomitant]
  4. FELDENE [Concomitant]

REACTIONS (1)
  - AMNESIA [None]
